FAERS Safety Report 17625592 (Version 3)
Quarter: 2020Q2

REPORT INFORMATION
  Report Type: Report from Study
  Country: KR (occurrence: KR)
  Receive Date: 20200404
  Receipt Date: 20200430
  Transmission Date: 20200713
  Serious: Yes (Other)
  Sender: FDA-Public Use
  Company Number: KR-TAKEDA-2020TUS015549

PATIENT
  Age: 35 Year
  Sex: Male

DRUGS (86)
  1. PONATINIB [Suspect]
     Active Substance: PONATINIB
     Indication: ACUTE LYMPHOCYTIC LEUKAEMIA
     Dosage: 45 MILLIGRAM, QD
     Route: 048
     Dates: start: 20190717, end: 20190729
  2. DEXAMETHASONE. [Concomitant]
     Active Substance: DEXAMETHASONE
     Indication: PROPHYLAXIS
     Dosage: 5 MILLIGRAM, QD
     Route: 042
     Dates: start: 20190808, end: 20190808
  3. FLUNAZOLE [Concomitant]
     Active Substance: FLUCONAZOLE
     Dosage: 100 MILLIGRAM, BID
     Route: 048
     Dates: start: 20191107, end: 20200101
  4. MAXIPIME [Concomitant]
     Active Substance: CEFEPIME HYDROCHLORIDE
     Indication: INFECTION PROPHYLAXIS
     Dosage: 2000 MILLIGRAM, BID
     Route: 042
     Dates: start: 20190710, end: 20190711
  5. PANTOLOC                           /01263204/ [Concomitant]
     Active Substance: PANTOPRAZOLE SODIUM
     Indication: HAEMATOCHEZIA
     Dosage: 200 MILLIGRAM, QD
     Route: 042
     Dates: start: 20190705, end: 20190707
  6. CALCIUM CHLORIDE. [Concomitant]
     Active Substance: CALCIUM CHLORIDE
     Dosage: 600 MILLIGRAM, QD
     Route: 042
     Dates: start: 20190815, end: 20190815
  7. CANCIDAS [Concomitant]
     Active Substance: CASPOFUNGIN ACETATE
     Indication: FEBRILE NEUTROPENIA
  8. NAXEN                              /00256201/ [Concomitant]
     Indication: FEBRILE NEUTROPENIA
     Dosage: 500 MILLIGRAM, BID
     Route: 048
     Dates: start: 20190717, end: 20190802
  9. MUCOSTEN [Concomitant]
     Indication: PROPHYLAXIS
     Dosage: 300 MICROGRAM, BID
     Route: 042
     Dates: start: 20190717, end: 20190814
  10. MUCOSTEN [Concomitant]
     Indication: RESPIRATORY TRACT CONGESTION
     Dosage: 600 MILLIGRAM, BID
     Route: 042
     Dates: start: 20191128, end: 20191217
  11. NEXIUM [Concomitant]
     Active Substance: ESOMEPRAZOLE MAGNESIUM
     Indication: DYSPEPSIA
     Dosage: 40 MILLIGRAM, QD
     Route: 048
     Dates: start: 20190815, end: 20190816
  12. NEXIUM [Concomitant]
     Active Substance: ESOMEPRAZOLE MAGNESIUM
     Dosage: 40 MILLIGRAM, QD
     Route: 042
     Dates: start: 20191209, end: 20191216
  13. PONATINIB [Suspect]
     Active Substance: PONATINIB
     Dosage: 45 MILLIGRAM, QD
     Route: 048
     Dates: start: 20190813
  14. ACLOVA                             /00587301/ [Concomitant]
     Dosage: 400 MILLIGRAM, BID
     Route: 048
     Dates: start: 20190808, end: 20191127
  15. ZAVEL [Concomitant]
     Active Substance: IDARUBICIN HYDROCHLORIDE
     Indication: ACUTE LYMPHOCYTIC LEUKAEMIA
     Dosage: 21.72 MILLIGRAM, QD
     Route: 042
     Dates: start: 20190704, end: 20190711
  16. DEXAMETHASONE. [Concomitant]
     Active Substance: DEXAMETHASONE
     Dosage: 5 MILLIGRAM, QD
     Route: 042
     Dates: start: 20191124, end: 20191224
  17. FLUNAZOLE [Concomitant]
     Active Substance: FLUCONAZOLE
     Dosage: 100 MILLIGRAM, BID
     Route: 048
     Dates: start: 20190808, end: 20190820
  18. OCUMETHOLONE [Concomitant]
     Indication: EYE DISORDER PROPHYLAXIS
     Dosage: 5 MILLILITER, QD
     Route: 031
     Dates: start: 20190704, end: 20190711
  19. PERATAM [Concomitant]
     Indication: INFECTION PROPHYLAXIS
     Dosage: 1 GRAM, BID
     Route: 042
     Dates: start: 20190703, end: 20190710
  20. PHOSLO [Concomitant]
     Active Substance: CALCIUM ACETATE
     Indication: HYPOCALCAEMIA
     Dosage: UNK
     Route: 065
  21. TEICONIN [Concomitant]
     Dosage: 400 MILLIGRAM, BID
     Route: 042
     Dates: start: 20190921, end: 20190921
  22. CANCIDAS [Concomitant]
     Active Substance: CASPOFUNGIN ACETATE
     Indication: FEBRILE NEUTROPENIA
     Dosage: 50 MILLIGRAM, QD
     Route: 042
     Dates: start: 20190717, end: 20190807
  23. SPRYCEL [Concomitant]
     Active Substance: DASATINIB
     Indication: PRODUCT USED FOR UNKNOWN INDICATION
     Dosage: 10 MILLIGRAM, QD
     Route: 048
     Dates: start: 20190304, end: 20190707
  24. CITOPCIN                           /00697202/ [Concomitant]
     Indication: FEBRILE NEUTROPENIA
     Dosage: 500 MILLIGRAM, BID
     Route: 048
     Dates: start: 20191004, end: 20191203
  25. FASTURTEC [Concomitant]
     Active Substance: RASBURICASE
     Indication: PROPHYLAXIS
     Dosage: 6 MILLIGRAM, QD
     Route: 042
     Dates: start: 20190704, end: 20190705
  26. FASTURTEC [Concomitant]
     Active Substance: RASBURICASE
     Indication: GOUT
     Dosage: UNK
     Route: 065
  27. NASERON [Concomitant]
     Active Substance: RAMOSETRON HYDROCHLORIDE
     Indication: PROPHYLAXIS OF NAUSEA AND VOMITING
  28. PHOSLO [Concomitant]
     Active Substance: CALCIUM ACETATE
     Indication: HYPOCALCAEMIA
  29. TAPOCIN [Concomitant]
     Indication: INFECTION PROPHYLAXIS
     Dosage: 400 MILLIGRAM, QD
     Route: 042
     Dates: start: 20190711, end: 20190714
  30. TAPOCIN [Concomitant]
     Indication: FEBRILE NEUTROPENIA
     Dosage: 400 MILLIGRAM, QD
     Route: 042
     Dates: start: 20190922, end: 20191004
  31. TEICONIN [Concomitant]
     Indication: INFECTION PROPHYLAXIS
     Dosage: 400 MILLIGRAM, BID
     Route: 042
     Dates: start: 20190710, end: 20190710
  32. TYLENOL ER [Concomitant]
     Active Substance: ACETAMINOPHEN
     Indication: FEBRILE NEUTROPENIA
     Dosage: 1300 MILLIGRAM, QD
     Route: 048
     Dates: start: 20190724, end: 20191229
  33. TANTUM                             /00052302/ [Concomitant]
     Indication: INFECTION PROPHYLAXIS
     Dosage: 100 MILLILITER, TID
     Route: 050
     Dates: start: 20190717, end: 20200101
  34. VANCO [Concomitant]
     Active Substance: VANCOMYCIN
     Indication: FEBRILE NEUTROPENIA
  35. CITOPCIN                           /00697202/ [Concomitant]
     Indication: INFECTION PROPHYLAXIS
     Dosage: 500 MILLIGRAM, BID
     Route: 048
     Dates: start: 20180427, end: 20190715
  36. CURAN [Concomitant]
     Active Substance: RANITIDINE HYDROCHLORIDE
     Indication: HAEMATOCHEZIA
  37. PENIRAMIN [Concomitant]
     Indication: TRANSFUSION
     Dosage: 4 MILLIGRAM
     Route: 042
     Dates: start: 20190719
  38. PHOSLO [Concomitant]
     Active Substance: CALCIUM ACETATE
     Indication: PROPHYLAXIS
     Dosage: 1420 MILLIGRAM, TID
     Route: 048
     Dates: start: 20190706, end: 20190711
  39. TRANEXAMIC ACID. [Concomitant]
     Active Substance: TRANEXAMIC ACID
     Indication: HAEMATOCHEZIA
  40. TYLENOL ER [Concomitant]
     Active Substance: ACETAMINOPHEN
     Indication: FEBRILE NEUTROPENIA
     Dosage: 1300 MILLIGRAM, QD
     Route: 048
     Dates: start: 20190627, end: 20190716
  41. NEUTROGIN [Concomitant]
     Active Substance: LENOGRASTIM
     Indication: FEBRILE NEUTROPENIA
  42. CIPROFLOXACIN. [Concomitant]
     Active Substance: CIPROFLOXACIN
     Indication: INFECTION PROPHYLAXIS
     Dosage: 400 MILLIGRAM, BID
     Route: 042
     Dates: start: 20190627, end: 20190627
  43. DASATINIB. [Concomitant]
     Active Substance: DASATINIB
     Indication: PRODUCT USED FOR UNKNOWN INDICATION
     Dosage: 10 MILLIGRAM, QD
     Route: 048
     Dates: start: 20190304, end: 20190707
  44. ACLOVA                             /00587301/ [Concomitant]
     Indication: INFECTION PROPHYLAXIS
     Dosage: 400 MILLIGRAM, BID
     Route: 048
     Dates: start: 20180704, end: 20190715
  45. CYTARABINE FAULDING [Concomitant]
     Indication: ACUTE LYMPHOCYTIC LEUKAEMIA
     Dosage: 3620 MILLIGRAM, QD
     Route: 042
     Dates: start: 20190704, end: 20190708
  46. AMPHOJEL                           /00057401/ [Concomitant]
     Indication: DYSPEPSIA
     Dosage: 300 MILLIGRAM, BID
     Route: 048
     Dates: start: 20190904, end: 20190904
  47. LIDOCAINE. [Concomitant]
     Active Substance: LIDOCAINE
     Indication: PAIN PROPHYLAXIS
     Dosage: 15 MILLILITER, QD
     Route: 048
     Dates: start: 20190716, end: 20190716
  48. MAXIPIME [Concomitant]
     Active Substance: CEFEPIME HYDROCHLORIDE
     Dosage: 2000 MILLIGRAM, TID
     Route: 042
     Dates: start: 20191119, end: 20191120
  49. PANTOLOC                           /01263204/ [Concomitant]
     Active Substance: PANTOPRAZOLE SODIUM
     Indication: PROPHYLAXIS
     Dosage: 40 MILLIGRAM, QD
     Route: 042
     Dates: start: 20191218, end: 20191220
  50. TAPOCIN [Concomitant]
     Indication: FEBRILE NEUTROPENIA
     Dosage: 400 MILLIGRAM, QD
     Route: 042
     Dates: start: 20191119, end: 20191229
  51. CALCIUM CHLORIDE. [Concomitant]
     Active Substance: CALCIUM CHLORIDE
     Indication: HYPOCALCAEMIA
     Dosage: 600 MILLIGRAM, QD
     Route: 042
     Dates: start: 20190726, end: 20190810
  52. DENOGAN [Concomitant]
     Active Substance: PROPACETAMOL HYDROCHLORIDE
     Indication: FEBRILE NEUTROPENIA
     Dosage: 1000 MILLIGRAM, QD
     Route: 042
     Dates: start: 20190924, end: 20190924
  53. CURAN [Concomitant]
     Active Substance: RANITIDINE HYDROCHLORIDE
     Indication: HAEMATOCHEZIA
     Dosage: 50 MILLIGRAM, QD
     Route: 042
     Dates: start: 20190703, end: 20190703
  54. DEXAMETHASONE. [Concomitant]
     Active Substance: DEXAMETHASONE
     Indication: FEBRILE NEUTROPENIA
     Dosage: 10 MILLIGRAM, BID
     Route: 042
     Dates: start: 20190703, end: 20190708
  55. DEXAMETHASONE. [Concomitant]
     Active Substance: DEXAMETHASONE
     Dosage: 5 MILLIGRAM, QD
     Route: 042
     Dates: start: 20191227, end: 20191227
  56. PERIDEX                            /00016001/ [Concomitant]
     Active Substance: DEXAMETHASONE
     Indication: PRURITUS
     Dosage: UNK
     Route: 065
  57. TRANEXAMIC ACID. [Concomitant]
     Active Substance: TRANEXAMIC ACID
     Indication: HAEMATOCHEZIA
     Dosage: 500 MILLIGRAM, QD
     Route: 042
     Dates: start: 20190705, end: 20190710
  58. CALCIUM CHLORIDE. [Concomitant]
     Active Substance: CALCIUM CHLORIDE
     Indication: HYPOCALCAEMIA
     Dosage: 600 MILLIGRAM, QD
     Route: 042
     Dates: start: 20190717, end: 20190722
  59. DENOGAN [Concomitant]
     Active Substance: PROPACETAMOL HYDROCHLORIDE
     Dosage: 1000 MILLIGRAM, QD
     Route: 042
     Dates: start: 20191121, end: 20191229
  60. NAXEN                              /00256201/ [Concomitant]
     Dosage: 500 MILLIGRAM, BID
     Route: 048
     Dates: start: 20191130, end: 20191211
  61. NEUTROGIN [Concomitant]
     Active Substance: LENOGRASTIM
     Indication: FEBRILE NEUTROPENIA
     Dosage: 250 MICROGRAM, QD
     Route: 042
     Dates: start: 20190717, end: 20190722
  62. SODIUM BICARBONATE. [Concomitant]
     Active Substance: SODIUM BICARBONATE
     Indication: ACIDOSIS
     Dosage: 40 MILLIEQUIVALENT, QD
     Route: 042
     Dates: start: 20190717, end: 20191230
  63. CIPROFLOXACIN. [Concomitant]
     Active Substance: CIPROFLOXACIN
     Indication: FEBRILE NEUTROPENIA
     Dosage: 400 MILLIGRAM, BID
     Route: 042
     Dates: start: 20191204, end: 20191215
  64. PONATINIB [Suspect]
     Active Substance: PONATINIB
     Dosage: 30 MILLIGRAM, QD
     Route: 048
     Dates: start: 20190805, end: 20190812
  65. DEXAMETHASONE. [Concomitant]
     Active Substance: DEXAMETHASONE
     Dosage: 5 MILLIGRAM, QD
     Route: 042
     Dates: start: 20191124, end: 20191124
  66. FLUNAZOLE [Concomitant]
     Active Substance: FLUCONAZOLE
     Indication: INFECTION PROPHYLAXIS
     Dosage: 100 MILLIGRAM, BID
     Route: 048
     Dates: start: 20190703, end: 20190714
  67. PENIRAMIN [Concomitant]
     Indication: PROPHYLAXIS
     Dosage: 4 MILLIGRAM, QD
     Route: 042
     Dates: start: 20190705, end: 20190716
  68. DENOGAN [Concomitant]
     Active Substance: PROPACETAMOL HYDROCHLORIDE
     Indication: FEBRILE NEUTROPENIA
     Dosage: 1000 MILLIGRAM, QD
     Route: 042
     Dates: start: 20190717, end: 20190807
  69. SOLONDO [Concomitant]
     Active Substance: PREDNISOLONE
     Indication: FEBRILE NEUTROPENIA
     Dosage: 30 MILLIGRAM, QD
     Route: 048
     Dates: start: 20190717, end: 20191229
  70. SOLONDO [Concomitant]
     Active Substance: PREDNISOLONE
     Indication: FEBRILE NEUTROPENIA
  71. NYSTATIN. [Concomitant]
     Active Substance: NYSTATIN
     Indication: INFECTION PROPHYLAXIS
     Dosage: 5 MILLILITER, TID
     Route: 048
     Dates: start: 20190717, end: 20191217
  72. CYTARABINE FAULDING [Concomitant]
     Dosage: 3620 MG, BID
     Route: 042
     Dates: start: 20190709, end: 20190711
  73. AMPHOJEL                           /00057401/ [Concomitant]
     Indication: PROPHYLAXIS
     Dosage: 300 MILLIGRAM, BID
     Route: 048
     Dates: start: 20180419, end: 20190714
  74. DEXAMETHASONE. [Concomitant]
     Active Substance: DEXAMETHASONE
     Indication: FEBRILE NEUTROPENIA
     Dosage: 5 MILLIGRAM, QD
     Route: 042
     Dates: start: 20190814, end: 20190816
  75. DEXAMETHASONE. [Concomitant]
     Active Substance: DEXAMETHASONE
     Dosage: 10 MILLIGRAM, BID
     Route: 042
     Dates: start: 20190904, end: 20190905
  76. NASERON [Concomitant]
     Active Substance: RAMOSETRON HYDROCHLORIDE
     Indication: PROPHYLAXIS OF NAUSEA AND VOMITING
     Dosage: 0.3 MILLIGRAM, QD
     Route: 042
     Dates: start: 20190704, end: 20190710
  77. PANTOLOC                           /01263204/ [Concomitant]
     Active Substance: PANTOPRAZOLE SODIUM
     Indication: DYSPEPSIA
     Dosage: 20 MILLIGRAM, QD
     Route: 048
     Dates: start: 20191222
  78. PERIDEX                            /00016001/ [Concomitant]
     Active Substance: DEXAMETHASONE
     Indication: PROPHYLAXIS
     Dosage: 6 GRAM, QD
     Route: 061
     Dates: start: 20190716, end: 20190716
  79. PETHIDINE [Concomitant]
     Active Substance: MEPERIDINE
     Indication: PAIN PROPHYLAXIS
     Dosage: 25 MILLIGRAM, QD
     Route: 042
     Dates: start: 20190708, end: 20190708
  80. TEICONIN [Concomitant]
     Dosage: 400 MILLIGRAM, QD
     Route: 042
     Dates: start: 20191213, end: 20191213
  81. CALCIUM CHLORIDE. [Concomitant]
     Active Substance: CALCIUM CHLORIDE
     Dosage: 600 MILLIGRAM, QD
     Route: 042
     Dates: start: 20190924, end: 20190924
  82. NEXIUM [Concomitant]
     Active Substance: ESOMEPRAZOLE MAGNESIUM
     Indication: PROPHYLAXIS
     Dosage: 40 MILLIGRAM, QD
     Route: 042
     Dates: start: 20190717, end: 20190814
  83. SODIUM BICARBONATE. [Concomitant]
     Active Substance: SODIUM BICARBONATE
     Indication: PROPHYLAXIS
     Dosage: 10 GRAM, QD
     Route: 048
     Dates: start: 20190717, end: 20200101
  84. VANCO [Concomitant]
     Active Substance: VANCOMYCIN
     Indication: FEBRILE NEUTROPENIA
     Dosage: 0.6 GRAM, TID
     Route: 042
     Dates: start: 20190717, end: 20190730
  85. CIPROFLOXACIN. [Concomitant]
     Active Substance: CIPROFLOXACIN
     Indication: FEBRILE NEUTROPENIA
  86. GLIVEC [Concomitant]
     Active Substance: IMATINIB MESYLATE
     Indication: PRODUCT USED FOR UNKNOWN INDICATION
     Dosage: 600 MILLIGRAM, QD
     Route: 048
     Dates: start: 20180427, end: 20180714

REACTIONS (6)
  - Alanine aminotransferase increased [Recovering/Resolving]
  - Aspartate aminotransferase increased [Recovering/Resolving]
  - Nausea [Recovered/Resolved]
  - Pseudomonas infection [Recovering/Resolving]
  - Rash [Recovered/Resolved]
  - Pneumonia fungal [Not Recovered/Not Resolved]

NARRATIVE: CASE EVENT DATE: 20190717
